FAERS Safety Report 11234906 (Version 1)
Quarter: 2015Q2

REPORT INFORMATION
  Report Type: Spontaneous
  Country: US (occurrence: None)
  Receive Date: 20150630
  Receipt Date: 20150630
  Transmission Date: 20150821
  Serious: Yes (Hospitalization)
  Sender: FDA-Public Use
  Company Number: 15AE030

PATIENT
  Age: 7 Year
  Sex: Male

DRUGS (1)
  1. DIPHENHYDRAMINE HCL [Suspect]
     Active Substance: DIPHENHYDRAMINE HYDROCHLORIDE
     Dates: start: 20150530

REACTIONS (2)
  - Cerebral arteriovenous malformation haemorrhagic [None]
  - Optic nerve injury [None]

NARRATIVE: CASE EVENT DATE: 20150531
